FAERS Safety Report 5632614-5 (Version None)
Quarter: 2008Q1

REPORT INFORMATION
  Report Type: 
  Country: None (occurrence: None)
  Receive Date: 20080131
  Receipt Date: 20071109
  Transmission Date: 20080703
  Serious: No
  Sender: FDA-Public Use
  Company Number: 163-21880-07100388

PATIENT
  Age: 89 Year
  Sex: Female

DRUGS (12)
  1. REVLIMID [Suspect]
     Indication: MULTIPLE MYELOMA
     Dosage: 10, 5 MG, DAILY X 21 DAYS, ORAL
     Route: 048
     Dates: start: 20070420, end: 20070801
  2. REVLIMID [Suspect]
     Indication: MULTIPLE MYELOMA
     Dosage: 10, 5 MG, DAILY X 21 DAYS, ORAL
     Route: 048
     Dates: start: 20070912
  3. ASPIRIN [Concomitant]
  4. FOSAMAX [Concomitant]
  5. PREVACID [Concomitant]
  6. ZOCOR [Concomitant]
  7. TOPROL-XL [Concomitant]
  8. FUROSEMIDE [Concomitant]
  9. K-TABS (POTASSIUM) [Concomitant]
  10. ADVAIR DISKUS 100/50 [Concomitant]
  11. GLUCOLAX (MACROGOL) (POWDER) [Concomitant]
  12. NTG PATCH (GLYCERYL TRINITRATE (POWDER) [Concomitant]

REACTIONS (1)
  - ABDOMINAL PAIN [None]
